FAERS Safety Report 18533951 (Version 1)
Quarter: 2020Q4

REPORT INFORMATION
  Report Type: Spontaneous
  Country: US (occurrence: US)
  Receive Date: 20201122
  Receipt Date: 20201122
  Transmission Date: 20210114
  Serious: Yes (Other)
  Sender: FDA-Public Use
  Company Number: None

PATIENT
  Age: 33 Year
  Sex: Female
  Weight: 49.5 kg

DRUGS (7)
  1. PROPRANOLOL 20 MG TABLET [Suspect]
     Active Substance: PROPRANOLOL HYDROCHLORIDE
     Indication: HEART RATE INCREASED
     Dosage: ?          QUANTITY:3 TABLET(S);?
     Route: 048
     Dates: start: 20201024
  2. ADDERALL [Concomitant]
     Active Substance: AMPHETAMINE ASPARTATE\AMPHETAMINE SULFATE\DEXTROAMPHETAMINE SACCHARATE\DEXTROAMPHETAMINE SULFATE
  3. SHAMPOO [Concomitant]
  4. PLEDGETS  SYEDA VIRTH CONTROL [Concomitant]
  5. KETOCONAZOLE CREAM [Concomitant]
     Active Substance: KETOCONAZOLE
  6. CLINDAMYCIN. [Concomitant]
     Active Substance: CLINDAMYCIN
  7. PROPRANOLOL 20 MG TABLET [Suspect]
     Active Substance: PROPRANOLOL HYDROCHLORIDE
     Indication: ANXIETY
     Dosage: ?          QUANTITY:3 TABLET(S);?
     Route: 048
     Dates: start: 20201024

REACTIONS (4)
  - Migraine [None]
  - Product physical issue [None]
  - Tachycardia [None]
  - Condition aggravated [None]

NARRATIVE: CASE EVENT DATE: 20201111
